FAERS Safety Report 9302167 (Version 2)
Quarter: 2013Q4

REPORT INFORMATION
  Report Type: Spontaneous
  Country: US (occurrence: US)
  Receive Date: 20130522
  Receipt Date: 20131112
  Transmission Date: 20140711
  Serious: Yes (Hospitalization)
  Sender: FDA-Public Use
  Company Number: US-B.I. PHARMACEUTICALS,INC./RIDGEFIELD-2013-BI-14239BP

PATIENT
  Age: 32 Year
  Sex: Female
  Weight: 83.91 kg

DRUGS (3)
  1. PRADAXA [Suspect]
     Indication: ANTICOAGULANT THERAPY
     Dosage: 300 MG
     Route: 048
     Dates: start: 20110622, end: 20110711
  2. MULTAQ [Concomitant]
     Dosage: 800 MG
     Route: 048
  3. FERROUS FUMARATE [Concomitant]
     Dosage: 650 MG
     Route: 048

REACTIONS (2)
  - Peritoneal haemorrhage [Unknown]
  - Haemorrhagic anaemia [Unknown]
